FAERS Safety Report 7197370-0 (Version None)
Quarter: 2010Q4

REPORT INFORMATION
  Report Type: 
  Country: None (occurrence: None)
  Receive Date: 20101227
  Receipt Date: 20101214
  Transmission Date: 20110411
  Serious: Yes (Disabling, Other)
  Sender: FDA-Public Use
  Company Number: US-CELGENEUS-163-21880-10110673

PATIENT
  Sex: Female

DRUGS (3)
  1. REVLIMID [Suspect]
     Indication: MYELODYSPLASTIC SYNDROME
     Route: 048
     Dates: start: 20100622
  2. ATENOLOL [Concomitant]
     Indication: HYPERTENSION
     Route: 048
  3. PREDNISONE [Concomitant]
     Route: 048

REACTIONS (2)
  - DIABETES MELLITUS [None]
  - DIARRHOEA [None]
